FAERS Safety Report 7005517-1 (Version None)
Quarter: 2010Q3

REPORT INFORMATION
  Report Type: 
  Country: None (occurrence: None)
  Receive Date: 20100917
  Receipt Date: 20100909
  Transmission Date: 20110219
  Serious: Yes (Hospitalization)
  Sender: FDA-Public Use
  Company Number: 2010JP004994

PATIENT
  Age: 80 Year
  Sex: Male
  Weight: 46.6 kg

DRUGS (12)
  1. PROGRAF [Suspect]
     Indication: RHEUMATOID ARTHRITIS
     Dosage: 2 MG, UID/QD, ORAL; 1.5 MG, ORAL
     Route: 048
     Dates: start: 20100525, end: 20100628
  2. PROGRAF [Suspect]
     Indication: RHEUMATOID ARTHRITIS
     Dosage: 2 MG, UID/QD, ORAL; 1.5 MG, ORAL
     Route: 048
     Dates: start: 20100629, end: 20100722
  3. CELECOXIB [Suspect]
     Indication: RHEUMATOID ARTHRITIS
     Dosage: 100 MG, BID, ORAL
     Route: 048
     Dates: start: 20100525, end: 20100726
  4. FUNGUARD (MICAFUNGIN) INJECTION [Suspect]
     Indication: INTERSTITIAL LUNG DISEASE
     Dosage: 75 MG, UID/QD,
     Dates: start: 20100728, end: 20100805
  5. LANSOPRAZOLE [Suspect]
     Indication: PROPHYLAXIS AGAINST GASTROINTESTINAL ULCER
     Dosage: 15 MG, UID/QD, ORAL
     Route: 048
     Dates: start: 20100525, end: 20100726
  6. BENET (RISEDRONATE SODIUM) TABLET [Concomitant]
  7. PREDNISOLONE TAB [Concomitant]
  8. CALONAL (PARACETAMOL) FORMULATION UNKNOWN [Concomitant]
  9. MEIACT (CEFDITOREN PIVOXIL) FORMULATION UNKNOWN [Concomitant]
  10. FINIBAX (DORIPENEM) INJECTION [Concomitant]
  11. ZITHROMAC (AZITHROMYCIN) FORMULATION UNKNOWN [Concomitant]
  12. PREDNISOLONE [Concomitant]

REACTIONS (4)
  - BLOOD BETA-D-GLUCAN INCREASED [None]
  - CHLAMYDIA TEST POSITIVE [None]
  - INTERSTITIAL LUNG DISEASE [None]
  - UPPER RESPIRATORY TRACT INFLAMMATION [None]
